FAERS Safety Report 4303539-2 (Version None)
Quarter: 2004Q1

REPORT INFORMATION
  Report Type: 
  Country: None (occurrence: None)
  Receive Date: 20040224
  Receipt Date: 20040224
  Transmission Date: 20041129
  Serious: Yes (Life-Threatening, Hospitalization, Disabling)
  Sender: FDA-Public Use
  Company Number: None

PATIENT
  Age: 55 Year
  Sex: Male
  Weight: 81.6475 kg

DRUGS (2)
  1. FLOMAX [Suspect]
     Indication: BENIGN PROSTATIC HYPERPLASIA
     Dosage: 1 X 30 MIN } DINNER
     Dates: start: 20040206, end: 20040215
  2. DITROPAN XL [Suspect]
     Indication: POLLAKIURIA
     Dosage: BEDTIME 1 TAB
     Dates: start: 20030905, end: 20040201

REACTIONS (1)
  - SYNCOPE [None]
